FAERS Safety Report 8008144-2 (Version None)
Quarter: 2011Q4

REPORT INFORMATION
  Report Type: 
  Country: None (occurrence: None)
  Receive Date: 20111227
  Receipt Date: 20111223
  Transmission Date: 20120403
  Serious: Yes (Death)
  Sender: FDA-Public Use
  Company Number: PHHY2011NL111828

PATIENT
  Sex: Female

DRUGS (3)
  1. ZOMETA [Suspect]
     Dosage: 4 MG/5ML, 1X PER 28 DAYS
     Dates: start: 20111105
  2. ZOMETA [Suspect]
     Indication: BREAST CANCER METASTATIC
     Dosage: 4 MG/5ML, 1X PER 28 DAYS
     Dates: start: 20100504
  3. ZOMETA [Suspect]
     Dosage: 4 MG/5ML, 1X PER 28 DAYS
     Dates: start: 20111004

REACTIONS (1)
  - DEATH [None]
